FAERS Safety Report 6295920-X (Version None)
Quarter: 2009Q3

REPORT INFORMATION
  Report Type: 
  Country: None (occurrence: None)
  Receive Date: 20090731
  Receipt Date: 20090720
  Transmission Date: 20100115
  Serious: Yes (Hospitalization)
  Sender: FDA-Public Use
  Company Number: ADE2009-0733

PATIENT
  Age: 39 Year
  Sex: Male

DRUGS (10)
  1. DIDANOSINE [Suspect]
     Indication: HIV INFECTION
     Dosage: 250MG - DAILY
     Dates: start: 20040301
  2. TENOFOVIR DISOPROXIL FUMARATE [Suspect]
     Indication: HIV INFECTION
  3. LOPINAVIR AND RITONAVIR [Concomitant]
  4. BICARBONATE [Concomitant]
  5. SULFAMETHOXAZOLE AND TRIMETHOPRIM [Concomitant]
  6. OMEPRAZOLE [Concomitant]
  7. POTASSIUM CHLORIDE [Concomitant]
  8. CELECOXIB [Concomitant]
  9. DRONABINOL [Concomitant]
  10. OXYCODONE HCL AND ACETAMINOPHEN [Concomitant]

REACTIONS (4)
  - DIABETES INSIPIDUS [None]
  - FANCONI SYNDROME [None]
  - NAUSEA [None]
  - WEIGHT DECREASED [None]
